FAERS Safety Report 20456891 (Version 1)
Quarter: 2022Q1

REPORT INFORMATION
  Report Type: Spontaneous
  Country: US (occurrence: US)
  Receive Date: 20220210
  Receipt Date: 20220210
  Transmission Date: 20220423
  Serious: No
  Sender: FDA-Public Use
  Company Number: US-PERRIGO-21US003536

PATIENT
  Age: 80 Year
  Sex: Male
  Weight: 72.562 kg

DRUGS (7)
  1. CETIRIZINE HYDROCHLORIDE [Suspect]
     Active Substance: CETIRIZINE HYDROCHLORIDE
     Indication: Rhinorrhoea
     Dosage: 10 MG, QD
     Route: 048
  2. CETIRIZINE HYDROCHLORIDE [Suspect]
     Active Substance: CETIRIZINE HYDROCHLORIDE
     Indication: Seasonal allergy
  3. FEXOFENADINE                       /01314202/ [Concomitant]
     Indication: Hypersensitivity
     Dosage: UNKNOWN, AT NIGHT
     Route: 065
     Dates: start: 2001
  4. LISINOPRIL [Concomitant]
     Active Substance: LISINOPRIL
     Indication: Heart rate abnormal
     Dosage: UNKNOWN, UNKNOWN
     Route: 065
     Dates: start: 20210125
  5. METOPROLOL [Concomitant]
     Active Substance: METOPROLOL
     Indication: Hypertension
     Dosage: UNKNOWN, UNKNOWN
     Route: 065
     Dates: start: 20210125
  6. FLUTICASONE [Concomitant]
     Active Substance: FLUTICASONE
     Indication: Hypersensitivity
     Dosage: UNKNOWN, UNKNOWN
     Route: 045
  7. ELIQUIS [Concomitant]
     Active Substance: APIXABAN
     Indication: Atrial fibrillation
     Dosage: 1 TABLET, DAILY
     Route: 065
     Dates: start: 2020

REACTIONS (3)
  - Drug ineffective for unapproved indication [Unknown]
  - Expired product administered [Unknown]
  - Product administered to patient of inappropriate age [Unknown]

NARRATIVE: CASE EVENT DATE: 20160501
